FAERS Safety Report 8139119-0 (Version None)
Quarter: 2012Q1

REPORT INFORMATION
  Report Type: 
  Country: None (occurrence: None)
  Receive Date: 20120215
  Receipt Date: 20120210
  Transmission Date: 20120608
  Serious: Yes (Life-Threatening, Hospitalization, Other)
  Sender: FDA-Public Use
  Company Number: DE-MERCK-1201DEU00077

PATIENT
  Age: 80 Year
  Sex: Female
  Weight: 49 kg

DRUGS (9)
  1. PRIMAXIN [Suspect]
     Indication: PYREXIA
     Route: 042
     Dates: start: 20110701, end: 20110715
  2. CIPROFLOXACIN HYDROCHLORIDE [Suspect]
     Route: 048
     Dates: start: 20110628, end: 20110628
  3. SULBACTAM SODIUM [Suspect]
     Route: 042
     Dates: start: 20110608, end: 20110608
  4. PIPERACILLIN [Suspect]
     Route: 042
     Dates: start: 20110628, end: 20110628
  5. PIPERACILLIN [Suspect]
     Route: 042
     Dates: start: 20110608, end: 20110608
  6. PIPERACILLIN [Suspect]
     Route: 042
     Dates: start: 20110609, end: 20110627
  7. SULBACTAM SODIUM [Suspect]
     Route: 042
     Dates: start: 20110609, end: 20110627
  8. SULBACTAM SODIUM [Suspect]
     Route: 042
     Dates: start: 20110628, end: 20110628
  9. CIPROFLOXACIN HYDROCHLORIDE [Suspect]
     Route: 048
     Dates: start: 20110610, end: 20110627

REACTIONS (4)
  - TONGUE DISCOLOURATION [None]
  - TUBULOINTERSTITIAL NEPHRITIS [None]
  - RENAL FAILURE ACUTE [None]
  - GASTRITIS [None]
